FAERS Safety Report 4463010-4 (Version None)
Quarter: 2004Q3

REPORT INFORMATION
  Report Type: 
  Country: None (occurrence: None)
  Receive Date: 20040927
  Receipt Date: 20040916
  Transmission Date: 20050211
  Serious: Yes (Hospitalization)
  Sender: FDA-Public Use
  Company Number: 2004234027DE

PATIENT
  Age: 76 Year
  Sex: Female
  Weight: 65.5 kg

DRUGS (5)
  1. AROMASIN [Suspect]
     Indication: BREAST CANCER
     Dosage: 25 MG, QD, ORAL
     Route: 048
     Dates: start: 20021004
  2. BISOPROLOL FUMARATE [Concomitant]
  3. ENALAPRIL MALEATE [Concomitant]
  4. METFORMIN [Concomitant]
  5. AQUAPHOR (PETROLATUM, WOLL ALCOHOLS, MINERAL OIL LIGHT) [Concomitant]

REACTIONS (1)
  - CEREBROVASCULAR ACCIDENT [None]
